FAERS Safety Report 14291926 (Version 1)
Quarter: 2017Q4

REPORT INFORMATION
  Report Type: Spontaneous
  Country: US (occurrence: US)
  Receive Date: 20171215
  Receipt Date: 20171215
  Transmission Date: 20180321
  Serious: Yes (Hospitalization)
  Sender: FDA-Public Use
  Company Number: US-NOVOPROD-562374

PATIENT
  Age: 82 Year
  Sex: Female
  Weight: 46.26 kg

DRUGS (3)
  1. LEVEMIR [Suspect]
     Active Substance: INSULIN DETEMIR
     Indication: TYPE 2 DIABETES MELLITUS
     Dosage: ONCE DAILY
     Route: 058
     Dates: start: 2016, end: 20170825
  2. LEVEMIR [Suspect]
     Active Substance: INSULIN DETEMIR
     Dosage: UNK
     Route: 042
     Dates: start: 20170826, end: 20170829
  3. LEVEMIR [Suspect]
     Active Substance: INSULIN DETEMIR
     Dosage: TWICE DAILY
     Route: 058
     Dates: start: 20170830

REACTIONS (1)
  - Blood glucose increased [Recovered/Resolved]

NARRATIVE: CASE EVENT DATE: 20170825
